FAERS Safety Report 5635084-6 (Version None)
Quarter: 2008Q1

REPORT INFORMATION
  Report Type: 
  Country: None (occurrence: None)
  Receive Date: 20080131
  Receipt Date: 20071112
  Transmission Date: 20080703
  Serious: No
  Sender: FDA-Public Use
  Company Number: 163-21880-07110687

PATIENT
  Age: 66 Year
  Sex: Male

DRUGS (1)
  1. REVLIMID [Suspect]
     Indication: MULTIPLE MYELOMA
     Dosage: 25 MG, EVERY DAY FOR 21 DAYS, THEN 1 WEEK OFF, ORAL
     Route: 048
     Dates: start: 20070417

REACTIONS (2)
  - LUNG INFECTION [None]
  - MUSCLE SPASMS [None]
